FAERS Safety Report 9540550 (Version 1)
Quarter: 2013Q3

REPORT INFORMATION
  Report Type: Spontaneous
  Country: CN (occurrence: CN)
  Receive Date: 20130920
  Receipt Date: 20130920
  Transmission Date: 20140515
  Serious: Yes (Other)
  Sender: FDA-Public Use
  Company Number: CN-ROCHE-1276445

PATIENT
  Age: 32 Year
  Sex: Female

DRUGS (2)
  1. PEGASYS [Suspect]
     Indication: HEPATITIS B
     Route: 058
  2. RIBAVIRIN [Concomitant]
     Indication: HEPATITIS B
     Route: 065

REACTIONS (2)
  - White blood cell count decreased [Not Recovered/Not Resolved]
  - Blood creatinine increased [Not Recovered/Not Resolved]
